FAERS Safety Report 7087059-0 (Version None)
Quarter: 2010Q4

REPORT INFORMATION
  Report Type: 
  Country: None (occurrence: None)
  Receive Date: 20101106
  Receipt Date: 20101026
  Transmission Date: 20110411
  Serious: Yes (Other)
  Sender: FDA-Public Use
  Company Number: US-WYE-H18364210

PATIENT
  Age: 82 Year
  Sex: Male
  Weight: 108.96 kg

DRUGS (5)
  1. ADVIL [Suspect]
     Indication: ARTHRITIS
     Route: 048
     Dates: start: 20100901
  2. GLYBURIDE [Concomitant]
  3. HYDRALAZINE [Concomitant]
  4. ACETYLSALICYLIC ACID [Concomitant]
  5. LOSARTAN [Concomitant]

REACTIONS (2)
  - BLOOD PRESSURE INCREASED [None]
  - CONDITION AGGRAVATED [None]
